FAERS Safety Report 5015720-8 (Version None)
Quarter: 2006Q2

REPORT INFORMATION
  Report Type: 
  Country: None (occurrence: None)
  Receive Date: 20060526
  Receipt Date: 20060510
  Transmission Date: 20061013
  Serious: Yes (Other)
  Sender: FDA-Public Use
  Company Number: PHBS2006JP07133

PATIENT
  Age: 24 Year
  Sex: Male

DRUGS (9)
  1. CARBAMAZEPINE [Suspect]
     Indication: SCHIZOPHRENIA
     Dosage: 1000 + 400 + 300 + 200MG/DAY, ORAL - SEE IMAGE
     Route: 048
  2. CHLORPROMAZINE [Suspect]
     Indication: SCHIZOPHRENIA
     Dosage: 400 + 25 MG/DAY, UNKNOWN
  3. HALOPERIDOL [Suspect]
     Indication: SCHIZOPHRENIA
     Dosage: 15 + 6 + 4 + 3 + 2 MG/DAY, UNKNOWN -SEE IMAGE
  4. LEVOMEPROMAZINE SANDOZ (NGX)(LEVOMEPROMAZINE) [Suspect]
     Indication: SCHIZOPHRENIA
     Dosage: 400 + 275 MG/DAY
  5. PROMETHAZINE (NGX) (PROMETHAZINE) [Suspect]
     Indication: SCHIZOPHRENIA
     Dosage: 112.5 + 50 + 25 MG/DAY
  6. BRIPERIDEN() [Suspect]
     Indication: SCHIZOPHRENIA
     Dosage: 2 MG/DAY, UNKNOWN
  7. SULTOPRIDE HYDROCHLORIDE(SULTOPRIDE [Suspect]
     Indication: SCHIZOPHRENIA
     Dosage: 1200 MG/DAY, ORAL
     Route: 048
  8. ZOTEPINE(ZOTEPINE) [Suspect]
     Indication: SCHIZOPHRENIA
     Dosage: 300 MG/DAY, ORAL
     Route: 048
  9. RISPERIDONE [Concomitant]

REACTIONS (1)
  - PLEUROTHOTONUS [None]
